FAERS Safety Report 7606815 (Version 4)
Quarter: 2014Q1

REPORT INFORMATION
  Report Type: Spontaneous
  Country: US (occurrence: US)
  Receive Date: 20100927
  Receipt Date: 20140219
  Transmission Date: 20141002
  Serious: Yes (Hospitalization)
  Sender: FDA-Public Use
  Company Number: US-BAYER-201034429NA

PATIENT
  Age: 40 Year
  Sex: Female
  Weight: 58 kg

DRUGS (5)
  1. YASMIN [Suspect]
     Route: 048
     Dates: start: 200802, end: 20080715
  2. IRON [Concomitant]
  3. ESTRADIOL [Concomitant]
     Dosage: UNK
     Dates: start: 200809, end: 200810
  4. PROGESTERONE [Concomitant]
     Dosage: UNK
     Dates: start: 200809, end: 200810
  5. DOXYCYCLINE [Concomitant]
     Dosage: 100 MG, UNK

REACTIONS (2)
  - Deep vein thrombosis [Unknown]
  - Pulmonary embolism [Unknown]
